FAERS Safety Report 19910444 (Version 1)
Quarter: 2021Q4

REPORT INFORMATION
  Report Type: Spontaneous
  Country: CN (occurrence: CN)
  Receive Date: 20211004
  Receipt Date: 20211004
  Transmission Date: 20220303
  Serious: Yes (Other)
  Sender: FDA-Public Use
  Company Number: CN-JNJFOC-20210950997

PATIENT
  Age: 8 Year
  Sex: Female
  Weight: 37 kg

DRUGS (1)
  1. ACETAMINOPHEN [Suspect]
     Active Substance: ACETAMINOPHEN
     Indication: Pyrexia
     Dosage: 250 MG FOR EACH TIME
     Route: 048

REACTIONS (3)
  - Toxic epidermal necrolysis [Recovering/Resolving]
  - Proteinuria [Unknown]
  - Incorrect dose administered [Unknown]
